FAERS Safety Report 6371125-9 (Version None)
Quarter: 2009Q3

REPORT INFORMATION
  Report Type: 
  Country: None (occurrence: None)
  Receive Date: 20090923
  Receipt Date: 20090916
  Transmission Date: 20100115
  Serious: Yes (Other)
  Sender: FDA-Public Use
  Company Number: US-MERCK-0909USA02200

PATIENT
  Age: 72 Year
  Sex: Female

DRUGS (9)
  1. FOSAMAX [Suspect]
     Indication: OSTEOPENIA
     Route: 048
     Dates: start: 20070101, end: 20090716
  2. GELATIN [Concomitant]
     Route: 065
  3. CYANOCOBALAMIN [Concomitant]
     Route: 065
  4. SIMVASTATIN [Concomitant]
     Route: 048
  5. ASCORBIC ACID [Concomitant]
     Route: 065
  6. VITAMINS (UNSPECIFIED) [Concomitant]
     Route: 065
  7. ENABLEX [Concomitant]
     Route: 065
  8. MIACALCIN [Concomitant]
     Route: 065
  9. CALCIUM (UNSPECIFIED) [Concomitant]
     Route: 065

REACTIONS (4)
  - ARTHRALGIA [None]
  - EPISTAXIS [None]
  - OEDEMA PERIPHERAL [None]
  - PAIN IN EXTREMITY [None]
